FAERS Safety Report 19396773 (Version 1)
Quarter: 2021Q2

REPORT INFORMATION
  Report Type: Report from Study
  Country: None (occurrence: MX)
  Receive Date: 20210609
  Receipt Date: 20210609
  Transmission Date: 20210717
  Serious: Yes (Death, Hospitalization, Other)
  Sender: FDA-Public Use
  Company Number: MX-BAUSCH-BL-2021-019841

PATIENT
  Age: 55 Year
  Sex: Male

DRUGS (13)
  1. LINEZOLID. [Suspect]
     Active Substance: LINEZOLID
     Indication: ANTIBIOTIC THERAPY
     Route: 065
     Dates: start: 2020
  2. LOPINAVIR/RITONAVIR [Concomitant]
     Active Substance: LOPINAVIR\RITONAVIR
     Indication: COVID-19
     Dates: start: 2020
  3. PREDNISONE. [Suspect]
     Active Substance: PREDNISONE
     Indication: COVID-19 PNEUMONIA
     Route: 065
     Dates: start: 2020
  4. MEROPENEM. [Suspect]
     Active Substance: MEROPENEM
     Indication: ANTIBIOTIC THERAPY
     Route: 065
     Dates: start: 2020
  5. BARICITINIB. [Concomitant]
     Active Substance: BARICITINIB
     Indication: COVID-19
     Dates: start: 2020
  6. HYDROCORTISONE. [Suspect]
     Active Substance: HYDROCORTISONE
     Indication: PRODUCT USE IN UNAPPROVED INDICATION
  7. RIBAVIRIN. [Suspect]
     Active Substance: RIBAVIRIN
     Indication: PRODUCT USE IN UNAPPROVED INDICATION
  8. DEXAMETHASONE. [Suspect]
     Active Substance: DEXAMETHASONE
     Indication: PRODUCT USE IN UNAPPROVED INDICATION
  9. RIBAVIRIN. [Suspect]
     Active Substance: RIBAVIRIN
     Indication: COVID-19
     Route: 065
     Dates: start: 2020
  10. CEFTAZIDIME/AVIBACTAM [Suspect]
     Active Substance: AVIBACTAM SODIUM\CEFTAZIDIME
     Indication: ANTIBIOTIC THERAPY
     Route: 065
     Dates: start: 2020
  11. DEXAMETHASONE. [Suspect]
     Active Substance: DEXAMETHASONE
     Indication: COVID-19 PNEUMONIA
     Route: 065
     Dates: start: 2020
  12. HYDROCORTISONE. [Suspect]
     Active Substance: HYDROCORTISONE
     Indication: COVID-19 PNEUMONIA
     Route: 065
     Dates: start: 2020
  13. CEFTRIAXONE. [Suspect]
     Active Substance: CEFTRIAXONE
     Indication: ANTIBIOTIC THERAPY
     Route: 065
     Dates: start: 2020

REACTIONS (3)
  - Pseudomonas infection [Unknown]
  - Product use in unapproved indication [Unknown]
  - Candida infection [Fatal]

NARRATIVE: CASE EVENT DATE: 2020
